FAERS Safety Report 7483867-2 (Version None)
Quarter: 2011Q2

REPORT INFORMATION
  Report Type: 
  Country: None (occurrence: None)
  Receive Date: 20110517
  Receipt Date: 20110429
  Transmission Date: 20111010
  Serious: No
  Sender: FDA-Public Use
  Company Number: US-B.I. PHARMACEUTICALS,INC./RIDGEFIELD-2011-BP-08780BP

PATIENT
  Sex: Male

DRUGS (17)
  1. LIPITOR [Concomitant]
  2. POTASSIUM CHLORIDE [Concomitant]
     Indication: VENOUS INSUFFICIENCY
  3. TAMSULOSIN HCL [Concomitant]
  4. GLUCOSAMINE [Concomitant]
  5. LOMOTIL [Concomitant]
     Indication: HAEMORRHOIDS
  6. LOVAZA [Concomitant]
  7. ASPIRIN [Concomitant]
  8. CA CO3 [Concomitant]
  9. PRADAXA [Suspect]
     Indication: CEREBROVASCULAR ACCIDENT PROPHYLAXIS
     Dosage: 300 MG
     Route: 048
     Dates: start: 20110307
  10. MULTI-VITAMIN [Concomitant]
  11. CLONAZEPAM [Concomitant]
  12. B COMPLEX WITH C [Concomitant]
  13. PRADAXA [Suspect]
     Indication: ATRIAL FIBRILLATION
  14. FUROSEMIDE [Concomitant]
     Indication: VENOUS INSUFFICIENCY
     Dosage: 40 MG
  15. VITAMIN E [Concomitant]
  16. VITAMIN D [Concomitant]
  17. HYDROCORTISONE [Concomitant]
     Indication: HAEMORRHOIDS

REACTIONS (5)
  - ABDOMINAL DISTENSION [None]
  - DIARRHOEA [None]
  - FLATULENCE [None]
  - FAECAL INCONTINENCE [None]
  - RECTAL HAEMORRHAGE [None]
